FAERS Safety Report 8135076-1 (Version None)
Quarter: 2012Q1

REPORT INFORMATION
  Report Type: 
  Country: None (occurrence: None)
  Receive Date: 20120214
  Receipt Date: 20120210
  Transmission Date: 20120608
  Serious: No
  Sender: FDA-Public Use
  Company Number: US-PFIZER INC-2012030101

PATIENT
  Sex: Female

DRUGS (6)
  1. CYMBALTA [Concomitant]
     Dosage: UNK
  2. LISINOPRIL [Concomitant]
     Dosage: UNK
  3. LYRICA [Suspect]
     Dosage: 50 MG, TAKE 1 EVERY 8 HOURS
  4. RANITIDINE [Concomitant]
     Dosage: UNK
  5. SYNTHROID [Concomitant]
     Dosage: UNK
  6. MOTRIN [Concomitant]
     Dosage: UNK

REACTIONS (1)
  - PAIN [None]
